FAERS Safety Report 21954752 (Version 2)
Quarter: 2023Q1

REPORT INFORMATION
  Report Type: Report from Study
  Country: RW (occurrence: RW)
  Receive Date: 20230205
  Receipt Date: 20230216
  Transmission Date: 20230418
  Serious: Yes (Other)
  Sender: FDA-Public Use
  Company Number: RW-BAYER-2023A011893

PATIENT
  Age: 37 Year
  Sex: Male
  Weight: 70 kg

DRUGS (3)
  1. RIVAROXABAN [Suspect]
     Active Substance: RIVAROXABAN
     Indication: Atrial fibrillation
     Dosage: 20 MG
     Route: 048
     Dates: start: 20190219, end: 20220330
  2. ASPIRIN [Concomitant]
     Active Substance: ASPIRIN
  3. PENICILLIN [Concomitant]
     Active Substance: PENICILLIN

REACTIONS (1)
  - Paternal exposure timing unspecified [Unknown]

NARRATIVE: CASE EVENT DATE: 20210817
